FAERS Safety Report 9824927 (Version 4)
Quarter: 2014Q1

REPORT INFORMATION
  Report Type: Report from Study
  Country: CM (occurrence: CM)
  Receive Date: 20140117
  Receipt Date: 20140213
  Transmission Date: 20141002
  Serious: Yes (Death, Other)
  Sender: FDA-Public Use
  Company Number: CM-JNJFOC-20140104800

PATIENT
  Age: 31 Year
  Sex: Female

DRUGS (8)
  1. PREZISTA [Suspect]
     Indication: HIV INFECTION
     Route: 048
     Dates: start: 20130528, end: 20131027
  2. PREZISTA [Suspect]
     Indication: HIV INFECTION
     Route: 048
     Dates: start: 20120911, end: 20130527
  3. INTELENCE [Suspect]
     Indication: HIV INFECTION
     Route: 048
     Dates: start: 20130528, end: 20131027
  4. TRUVADA [Suspect]
     Indication: HIV INFECTION
     Route: 048
     Dates: start: 20120911, end: 20131027
  5. NORVIR [Suspect]
     Indication: HIV INFECTION
     Route: 048
     Dates: start: 20130528, end: 20131027
  6. NORVIR [Suspect]
     Indication: HIV INFECTION
     Route: 048
     Dates: start: 20120911, end: 20130527
  7. LAMIVUDINE [Suspect]
     Indication: HIV INFECTION
     Route: 048
     Dates: start: 20131022, end: 20131027
  8. BARACLUDE [Suspect]
     Indication: HIV INFECTION
     Route: 048
     Dates: start: 20130528, end: 20131027

REACTIONS (2)
  - Postpartum haemorrhage [Fatal]
  - Exposure during pregnancy [Recovered/Resolved]
